FAERS Safety Report 7986947-8 (Version None)
Quarter: 2011Q4

REPORT INFORMATION
  Report Type: 
  Country: None (occurrence: None)
  Receive Date: 20111216
  Receipt Date: 20110914
  Transmission Date: 20120403
  Serious: Yes (Hospitalization, Other)
  Sender: FDA-Public Use
  Company Number: US-BRISTOL-MYERS SQUIBB COMPANY-16058760

PATIENT
  Age: 52 Year
  Sex: Female

DRUGS (2)
  1. RITALIN [Suspect]
  2. ABILIFY [Suspect]
     Dosage: STOPPED 2WEEKS AGO
     Dates: start: 20110506, end: 20110101

REACTIONS (5)
  - MUSCULOSKELETAL STIFFNESS [None]
  - MYALGIA [None]
  - URINARY INCONTINENCE [None]
  - GAIT DISTURBANCE [None]
  - PALPITATIONS [None]
